FAERS Safety Report 7025016-0 (Version None)
Quarter: 2010Q4

REPORT INFORMATION
  Report Type: 
  Country: None (occurrence: None)
  Receive Date: 20101001
  Receipt Date: 20100922
  Transmission Date: 20110411
  Serious: Yes (Death, Hospitalization, Other)
  Sender: FDA-Public Use
  Company Number: DE-NOVOPROD-314100

PATIENT
  Sex: Female
  Weight: 71 kg

DRUGS (5)
  1. VICTOZA [Suspect]
     Indication: TYPE 2 DIABETES MELLITUS
     Dosage: 1.8 MG, UNK
     Route: 058
     Dates: start: 20090416, end: 20100420
  2. ACTRAPID [Concomitant]
     Dosage: UNK
     Route: 058
     Dates: start: 20100420
  3. METFORMIN HCL [Concomitant]
     Dosage: UNK
     Route: 048
     Dates: start: 20050101, end: 20100723
  4. ASPIRIN [Concomitant]
     Dosage: UNK
     Route: 048
     Dates: start: 20080101
  5. SIMVAHEXAL [Concomitant]
     Dosage: UNK
     Route: 048
     Dates: start: 20080101

REACTIONS (1)
  - CEREBRAL INFARCTION [None]
